FAERS Safety Report 6869769-0 (Version None)
Quarter: 2010Q3

REPORT INFORMATION
  Report Type: 
  Country: None (occurrence: None)
  Receive Date: 20100722
  Receipt Date: 20100709
  Transmission Date: 20110219
  Serious: Yes (Death, Hospitalization)
  Sender: FDA-Public Use
  Company Number: SE-PFIZER INC-2010085632

PATIENT
  Age: 53 Year
  Sex: Male

DRUGS (12)
  1. FRAGMIN [Suspect]
     Dosage: UNK
     Dates: start: 20100408, end: 20100513
  2. TROMBYL [Suspect]
     Indication: ACUTE MYOCARDIAL INFARCTION
     Dosage: 75 MG, UNK
     Route: 048
     Dates: start: 20100317, end: 20100513
  3. TROMBYL [Suspect]
     Indication: HYPERTENSION
  4. PLAVIX [Suspect]
     Indication: ACUTE MYOCARDIAL INFARCTION
     Dosage: 75 MG DAILY
     Route: 048
     Dates: start: 20100317, end: 20100513
  5. PLAVIX [Suspect]
     Indication: HYPERTENSION
  6. NULYTELY [Concomitant]
     Dosage: UNK
  7. GABAPENTIN [Concomitant]
     Dosage: UNK
  8. CITALOPRAM [Concomitant]
     Dosage: UNK
  9. SELOKEN [Concomitant]
     Dosage: UNK
  10. ACETAMINOPHEN W/ CODEINE [Concomitant]
     Dosage: UNK
  11. AMLODIPINE [Concomitant]
     Dosage: UNK
  12. SODIUM PICOSULFATE [Concomitant]
     Dosage: 7.5 MG/ML, UNK

REACTIONS (1)
  - CEREBRAL HAEMORRHAGE [None]
